FAERS Safety Report 4928514-6 (Version None)
Quarter: 2006Q1

REPORT INFORMATION
  Report Type: 
  Country: None (occurrence: None)
  Receive Date: 20060223
  Receipt Date: 20060213
  Transmission Date: 20060701
  Serious: Yes (Hospitalization, Other)
  Sender: FDA-Public Use
  Company Number: HQWYE791414FEB06

PATIENT
  Age: 56 Year
  Sex: Male

DRUGS (9)
  1. AMIODARONE HCL [Suspect]
     Indication: SUPRAVENTRICULAR TACHYCARDIA
     Dosage: 1.2 G 1X PER 1 DAY, INTRAVENOUS
     Route: 042
  2. AMIODARONE HCL [Suspect]
     Indication: SUPRAVENTRICULAR TACHYCARDIA
     Dosage: LOADING DOSE OF 600 MG/DAY FOR ONE WEEK AND THEN 200 MG/DAY
  3. CLARITHROMYCIN [Suspect]
     Dosage: 1 G 1X PER 1 DAY, ORAL
     Route: 048
  4. SIMVASTATIN [Suspect]
     Dosage: SEE IMAGE
  5. CEFTRIAXONE [Concomitant]
  6. ASPIRIN [Concomitant]
  7. FERROUS SULFATE TAB [Concomitant]
  8. AMLODIPINE [Concomitant]
  9. LANSOPRAZOLE [Concomitant]

REACTIONS (6)
  - DRUG INTERACTION [None]
  - LIVER FUNCTION TEST ABNORMAL [None]
  - MUSCULAR WEAKNESS [None]
  - MYOPATHY [None]
  - MYOSITIS [None]
  - PAIN [None]
